FAERS Safety Report 9411101 (Version 1)
Quarter: 2013Q3

REPORT INFORMATION
  Report Type: Report from Study
  Country: DE (occurrence: DE)
  Receive Date: 20130721
  Receipt Date: 20130721
  Transmission Date: 20140515
  Serious: Yes (Hospitalization)
  Sender: FDA-Public Use
  Company Number: PHHY2013DE076378

PATIENT
  Age: 61 Year
  Sex: Male

DRUGS (4)
  1. MYCOPHENOLATE MOFETIL [Suspect]
     Indication: RENAL TRANSPLANT
     Dosage: 1.5 MG, UNK
     Route: 048
     Dates: start: 20090525, end: 20090612
  2. ADVAGRAF [Suspect]
     Indication: RENAL TRANSPLANT
     Dosage: 5 MG, UNK
     Route: 048
     Dates: start: 20090525, end: 20090608
  3. ADVAGRAF [Suspect]
     Dosage: 4 MG, UNK
     Route: 048
     Dates: start: 20090616
  4. BASILIXIMAB [Suspect]
     Indication: RENAL TRANSPLANT
     Dosage: 20 MG, ON DAY 1 AND DAY 11

REACTIONS (12)
  - Weight decreased [Unknown]
  - Gastritis erosive [Unknown]
  - Vomiting [Unknown]
  - Diarrhoea [Recovered/Resolved]
  - Gastrointestinal inflammation [Unknown]
  - Nausea [Recovering/Resolving]
  - Duodenitis [Unknown]
  - Oesophagitis [Unknown]
  - Overdose [Recovered/Resolved with Sequelae]
  - Blood calcium increased [Unknown]
  - Gastrooesophageal reflux disease [Unknown]
  - Drug intolerance [Unknown]
